FAERS Safety Report 11379030 (Version 1)
Quarter: 2015Q3

REPORT INFORMATION
  Report Type: Spontaneous
  Country: US (occurrence: None)
  Receive Date: 20150812
  Receipt Date: 20150812
  Transmission Date: 20151125
  Serious: Yes (Hospitalization)
  Sender: FDA-Public Use
  Company Number: None

PATIENT
  Age: 68 Year
  Sex: Male
  Weight: 91 kg

DRUGS (1)
  1. HYDROCHLOROTHIAZIDE. [Suspect]
     Active Substance: HYDROCHLOROTHIAZIDE
     Indication: HYPERTENSION
     Route: 048
     Dates: start: 20150707, end: 20150808

REACTIONS (6)
  - Hypomagnesaemia [None]
  - Hyponatraemia [None]
  - Walking aid user [None]
  - Cough [None]
  - Fall [None]
  - Gait disturbance [None]

NARRATIVE: CASE EVENT DATE: 20150805
